FAERS Safety Report 16383932 (Version 1)
Quarter: 2019Q2

REPORT INFORMATION
  Report Type: Spontaneous
  Country: CN (occurrence: CN)
  Receive Date: 20190603
  Receipt Date: 20190603
  Transmission Date: 20190711
  Serious: Yes (Life-Threatening)
  Sender: FDA-Public Use
  Company Number: CN-EMD SERONO-9095462

PATIENT
  Age: 32 Year
  Sex: Female

DRUGS (2)
  1. CETRORELIX [Suspect]
     Active Substance: CETRORELIX
     Indication: POLYCYSTIC OVARIES
     Route: 058
     Dates: start: 20190526, end: 20190527
  2. CETRORELIX [Suspect]
     Active Substance: CETRORELIX
     Indication: INFERTILITY

REACTIONS (4)
  - Dizziness [Recovering/Resolving]
  - Nausea [Recovering/Resolving]
  - Chest discomfort [Recovering/Resolving]
  - Asthenia [Recovering/Resolving]

NARRATIVE: CASE EVENT DATE: 20190526
